FAERS Safety Report 6102772-7 (Version None)
Quarter: 2009Q1

REPORT INFORMATION
  Report Type: 
  Country: None (occurrence: None)
  Receive Date: 20090304
  Receipt Date: 20090224
  Transmission Date: 20090719
  Serious: Yes (Hospitalization, Other)
  Sender: FDA-Public Use
  Company Number: US-ROXANE LABORATORIES, INC.-2009-RO-00188RO

PATIENT
  Age: 47 Year
  Sex: Female

DRUGS (9)
  1. METHADONE HCL [Suspect]
     Indication: DRUG WITHDRAWAL MAINTENANCE THERAPY
     Dosage: 230MG
  2. METHADONE HCL [Suspect]
     Dosage: 90MG
  3. EFAVIRENZ [Suspect]
     Indication: ANTIRETROVIRAL THERAPY
     Dosage: 600MG
  4. EMTRICITABINE/TENOFOVIR [Suspect]
     Indication: ANTIRETROVIRAL THERAPY
  5. VORICONAZOLE [Suspect]
     Indication: BRONCHOPULMONARY ASPERGILLOSIS
     Dosage: 400MG
  6. RALTEGRAVIR [Suspect]
     Indication: ANTIRETROVIRAL THERAPY
     Dosage: 800MG
  7. AMIODARONE HCL [Concomitant]
     Indication: VENTRICULAR TACHYCARDIA
  8. ISOPROTERENOL [Concomitant]
     Indication: VENTRICULAR TACHYCARDIA
  9. BUPRENORPHINE/NALOXONE [Concomitant]
     Indication: DRUG WITHDRAWAL SYNDROME

REACTIONS (8)
  - BRONCHOPULMONARY ASPERGILLOSIS [None]
  - DRUG INTERACTION [None]
  - DRUG LEVEL INCREASED [None]
  - DRUG WITHDRAWAL SYNDROME [None]
  - ELECTROCARDIOGRAM QT PROLONGED [None]
  - PNEUMOTHORAX [None]
  - TORSADE DE POINTES [None]
  - VENTRICULAR TACHYCARDIA [None]
